FAERS Safety Report 16689105 (Version 2)
Quarter: 2019Q3

REPORT INFORMATION
  Report Type: Report from Study
  Country: US (occurrence: US)
  Receive Date: 20190809
  Receipt Date: 20190827
  Transmission Date: 20191004
  Serious: Yes (Other)
  Sender: FDA-Public Use
  Company Number: US-BAUSCH-BL-2019-022375

PATIENT
  Sex: Male

DRUGS (3)
  1. OXYCODONE [Concomitant]
     Active Substance: OXYCODONE
     Indication: PRODUCT USED FOR UNKNOWN INDICATION
     Dosage: AS NEEDED
  2. UCERIS [Suspect]
     Active Substance: BUDESONIDE
     Indication: COLITIS ULCERATIVE
     Dosage: STARTED SINCE THE BEGINNING OF LAST YEAR AND OUT OF MEDICATION THREE TO FOUR MONTHS AGO
     Route: 048
     Dates: start: 2018, end: 2019
  3. UCERIS [Suspect]
     Active Substance: BUDESONIDE
     Indication: PROCTITIS

REACTIONS (5)
  - Insurance issue [Unknown]
  - Proctitis [Not Recovered/Not Resolved]
  - Therapy cessation [Unknown]
  - Haemorrhage [Not Recovered/Not Resolved]
  - Condition aggravated [Not Recovered/Not Resolved]

NARRATIVE: CASE EVENT DATE: 2019
